FAERS Safety Report 6998013-9 (Version None)
Quarter: 2010Q3

REPORT INFORMATION
  Report Type: 
  Country: None (occurrence: None)
  Receive Date: 20100920
  Receipt Date: 20070518
  Transmission Date: 20110219
  Serious: Yes (Other)
  Sender: FDA-Public Use
  Company Number: US-ASTRAZENECA-2006UW23672

PATIENT
  Age: 478 Month
  Sex: Male
  Weight: 99.8 kg

DRUGS (30)
  1. SEROQUEL [Suspect]
     Indication: DEPRESSION
     Dosage: 25 MG AT NIGHT, 50 MG AT NIGHT, 100 MG DISPENSED
     Route: 048
     Dates: start: 20000101
  2. SEROQUEL [Suspect]
     Indication: AFFECTIVE DISORDER
     Dosage: 25 MG AT NIGHT, 50 MG AT NIGHT, 100 MG DISPENSED
     Route: 048
     Dates: start: 20000101
  3. SEROQUEL [Suspect]
     Indication: ANXIETY
     Dosage: 25 MG AT NIGHT, 50 MG AT NIGHT, 100 MG DISPENSED
     Route: 048
     Dates: start: 20000101
  4. SEROQUEL [Suspect]
     Route: 048
     Dates: start: 20001103, end: 20060504
  5. SEROQUEL [Suspect]
     Route: 048
     Dates: start: 20001103, end: 20060504
  6. SEROQUEL [Suspect]
     Route: 048
     Dates: start: 20001103, end: 20060504
  7. SEROQUEL [Suspect]
     Route: 048
     Dates: start: 20030901, end: 20060201
  8. SEROQUEL [Suspect]
     Route: 048
     Dates: start: 20030901, end: 20060201
  9. SEROQUEL [Suspect]
     Route: 048
     Dates: start: 20030901, end: 20060201
  10. PROZAC [Suspect]
     Dates: start: 20021120
  11. DOXEPIN HCL [Suspect]
     Dates: start: 20010123
  12. CELEXA [Suspect]
     Dates: start: 20010123
  13. SERZONE [Suspect]
     Dates: start: 20010323
  14. SERZONE [Suspect]
     Dates: start: 20020101
  15. EFFEXOR [Suspect]
     Dates: start: 20011030
  16. EFFEXOR [Suspect]
     Dates: start: 20020101, end: 20060227
  17. AVANDIA [Concomitant]
     Dates: start: 20060101
  18. PREDNISONE [Concomitant]
     Indication: ASTHMA
     Dosage: 5 TO 10 MG A DAY IN A 20 MG PILL
     Dates: start: 20040101
  19. AMARYL [Concomitant]
     Dosage: 4 MG A DAY, 8 MG A DAY DEPENDING ON SUGARS
     Dates: start: 20060101
  20. TRILEPTAL [Concomitant]
     Indication: AFFECTIVE DISORDER
     Dates: start: 20060101
  21. AMBIEN [Concomitant]
     Dosage: 5 TO 15 MG AT NIGHT
     Dates: start: 20000701
  22. DILTIAZEM CD [Concomitant]
     Indication: BLOOD PRESSURE
     Dates: start: 20060101
  23. ALTACE [Concomitant]
     Indication: BLOOD PRESSURE
     Dates: start: 20060101
  24. ALTACE [Concomitant]
     Indication: DIABETES MELLITUS
     Dates: start: 20060101
  25. TRICOR [Concomitant]
     Dosage: 160 MG ONE A DAY, TWICE PER DAY
     Dates: start: 20030101
  26. DIAZEPAM [Concomitant]
     Dosage: 5 MG T.I.D AS REQUIRED
     Dates: start: 20000120
  27. LISINOPRIL [Concomitant]
     Dates: start: 20060101
  28. NORVASC [Concomitant]
     Dates: start: 20060101
  29. XALATAN [Concomitant]
     Dates: start: 20060101
  30. TRUSOPT EYEDROPS [Concomitant]
     Dates: start: 20060101

REACTIONS (8)
  - BLOOD CHOLESTEROL INCREASED [None]
  - BLOOD TRIGLYCERIDES DECREASED [None]
  - DIABETES MELLITUS [None]
  - GLAUCOMA [None]
  - HYPERGLYCAEMIA [None]
  - HYPERLIPIDAEMIA [None]
  - HYPERTRIGLYCERIDAEMIA [None]
  - TYPE 2 DIABETES MELLITUS [None]
